FAERS Safety Report 12324292 (Version 1)
Quarter: 2016Q2

REPORT INFORMATION
  Report Type: Report from Study
  Country: US (occurrence: US)
  Receive Date: 20160502
  Receipt Date: 20160502
  Transmission Date: 20160815
  Serious: No
  Sender: FDA-Public Use
  Company Number: US-ABBVIE-15P-163-1400687-00

PATIENT
  Sex: Male

DRUGS (3)
  1. ANDROGEL [Suspect]
     Active Substance: TESTOSTERONE
     Indication: PITUITARY TUMOUR BENIGN
     Dosage: IN THE PAST:PUMP AND PACKETS
     Route: 061
     Dates: end: 2015
  2. ANDROGEL [Suspect]
     Active Substance: TESTOSTERONE
     Dosage: 4 PUMPS PER DAY
     Route: 061
     Dates: start: 2015
  3. ANDROGEL [Suspect]
     Active Substance: TESTOSTERONE
     Indication: PITUITARY TUMOUR BENIGN
     Dosage: 5 PUMPS PER DAY
     Route: 061
     Dates: start: 2015, end: 2015

REACTIONS (1)
  - Irritability [Unknown]

NARRATIVE: CASE EVENT DATE: 2015
